FAERS Safety Report 9365022 (Version 2)
Quarter: 2013Q2

REPORT INFORMATION
  Report Type: Spontaneous
  Country: DE (occurrence: DE)
  Receive Date: 20130624
  Receipt Date: 20130627
  Transmission Date: 20140414
  Serious: Yes (Hospitalization)
  Sender: FDA-Public Use
  Company Number: DE-TEVA-411747GER

PATIENT
  Age: 34 Year
  Sex: Female

DRUGS (13)
  1. CLARITHROMYCIN [Suspect]
     Dosage: 500 MILLIGRAM DAILY;
     Route: 048
     Dates: start: 200707
  2. CLARITHROMYCIN [Suspect]
     Dosage: 500 MILLIGRAM DAILY; 2 X 250MG
     Route: 048
     Dates: start: 201009
  3. CIPROFLOXACIN [Suspect]
     Dosage: 1000 MILLIGRAM DAILY;
     Route: 048
     Dates: start: 201003
  4. CIPROFLOXACIN [Suspect]
     Dosage: 1000 MILLIGRAM DAILY;
     Route: 048
     Dates: start: 201105
  5. PIPERACILLIN, TAZOBACTAM [Suspect]
     Dosage: 13.5 GRAM DAILY;
     Route: 042
     Dates: start: 201009
  6. PIPERACILLIN, TAZOBACTAM [Suspect]
     Dosage: 13.5 GRAM DAILY; 3 X 4.5G
     Route: 042
     Dates: start: 201102
  7. GENTAMICIN [Suspect]
     Dosage: 240 MILLIGRAM DAILY;
     Route: 042
     Dates: start: 201009
  8. GENTAMICIN [Suspect]
     Dosage: 1 X 240MG
     Route: 042
     Dates: start: 201102
  9. CEFTRIAXONE [Suspect]
     Dosage: 1 GRAM DAILY;
     Route: 042
     Dates: start: 201012
  10. MEROPENEM [Suspect]
     Dosage: 3 GRAM DAILY;
     Route: 042
     Dates: start: 201105
  11. MOXIFLOXACIN [Suspect]
     Dosage: 400 MILLIGRAM DAILY;
     Route: 048
     Dates: start: 200806
  12. IMMUNE GLOBULIN [Concomitant]
     Indication: IMMUNODEFICIENCY COMMON VARIABLE
     Route: 051
     Dates: start: 1998
  13. IMMUNE GLOBULIN [Concomitant]
     Indication: IMMUNODEFICIENCY COMMON VARIABLE
     Route: 058
     Dates: start: 1998

REACTIONS (2)
  - Multiple-drug resistance [Unknown]
  - Pneumonia haemophilus [Unknown]
